FAERS Safety Report 14074701 (Version 1)
Quarter: 2017Q4

REPORT INFORMATION
  Report Type: Spontaneous
  Country: SE (occurrence: SE)
  Receive Date: 20171011
  Receipt Date: 20171011
  Transmission Date: 20180321
  Serious: Yes (Other)
  Sender: FDA-Public Use
  Company Number: SE-LPDUSPRD-20171367

PATIENT
  Age: 32 Year
  Sex: Female

DRUGS (1)
  1. FERINJECT [Suspect]
     Active Substance: FERRIC CARBOXYMALTOSE
     Dosage: 500 MG
     Route: 041
     Dates: start: 20170526, end: 20170526

REACTIONS (5)
  - Urticaria [Unknown]
  - Pruritus [Unknown]
  - Oral pruritus [Unknown]
  - Flushing [Unknown]
  - Throat irritation [Unknown]

NARRATIVE: CASE EVENT DATE: 20170526
